FAERS Safety Report 22393480 (Version 1)
Quarter: 2023Q2

REPORT INFORMATION
  Report Type: Spontaneous
  Country: BH (occurrence: BH)
  Receive Date: 20230601
  Receipt Date: 20230601
  Transmission Date: 20230721
  Serious: Yes (Hospitalization, Other)
  Sender: FDA-Public Use
  Company Number: BH-AMNEAL PHARMACEUTICALS-2023-AMRX-01899

PATIENT
  Age: 52 Year
  Sex: Female

DRUGS (4)
  1. PROPRANOLOL HYDROCHLORIDE [Suspect]
     Active Substance: PROPRANOLOL HYDROCHLORIDE
     Indication: Chest pain
     Dosage: 500 MILLIGRAM
     Route: 065
  2. PROPRANOLOL HYDROCHLORIDE [Suspect]
     Active Substance: PROPRANOLOL HYDROCHLORIDE
     Indication: Discomfort
  3. PROPAFENONE HCL [Suspect]
     Active Substance: PROPAFENONE HYDROCHLORIDE
     Indication: Chest pain
     Dosage: 1.5 GRAM
     Route: 065
  4. PROPAFENONE HCL [Suspect]
     Active Substance: PROPAFENONE HYDROCHLORIDE
     Indication: Discomfort

REACTIONS (6)
  - Generalised tonic-clonic seizure [Unknown]
  - Depressed level of consciousness [Unknown]
  - Respiratory acidosis [Unknown]
  - Hypotension [Unknown]
  - Sinus bradycardia [Recovered/Resolved]
  - Overdose [Unknown]
